FAERS Safety Report 16678577 (Version 1)
Quarter: 2019Q3

REPORT INFORMATION
  Report Type: Spontaneous
  Country: US (occurrence: US)
  Receive Date: 20190806
  Receipt Date: 20190806
  Transmission Date: 20191004
  Serious: Yes (Hospitalization)
  Sender: FDA-Public Use
  Company Number: None

PATIENT
  Age: 74 Year
  Sex: Male

DRUGS (9)
  1. RANEXA [Concomitant]
     Active Substance: RANOLAZINE
  2. PRILOSEC [Concomitant]
     Active Substance: OMEPRAZOLE MAGNESIUM
  3. PRALUENT [Suspect]
     Active Substance: ALIROCUMAB
     Indication: TYPE IIA HYPERLIPIDAEMIA
     Dosage: ?          OTHER FREQUENCY:Q2WKS;?
     Route: 058
     Dates: start: 20160129
  4. PREDNISONE. [Concomitant]
     Active Substance: PREDNISONE
  5. SALSALATE. [Concomitant]
     Active Substance: SALSALATE
  6. HYDROCODONE CRY BITARTRA [Concomitant]
  7. PLAVIX [Concomitant]
     Active Substance: CLOPIDOGREL BISULFATE
  8. SYNTHROID [Concomitant]
     Active Substance: LEVOTHYROXINE SODIUM
  9. ENBREL [Suspect]
     Active Substance: ETANERCEPT
     Dosage: ?          OTHER FREQUENCY:QWK;?
     Route: 058

REACTIONS (2)
  - Therapy cessation [None]
  - Knee arthroplasty [None]

NARRATIVE: CASE EVENT DATE: 20190314
